FAERS Safety Report 18540325 (Version 3)
Quarter: 2022Q4

REPORT INFORMATION
  Report Type: Spontaneous
  Country: CA (occurrence: CA)
  Receive Date: 20201124
  Receipt Date: 20221207
  Transmission Date: 20230113
  Serious: Yes (Death, Other)
  Sender: FDA-Public Use
  Company Number: CA-SAMSUNG BIOEPIS-SB-2020-35040

PATIENT
  Age: 60 Year
  Sex: Male
  Weight: 91 kg

DRUGS (3)
  1. INFLIXIMAB [Suspect]
     Active Substance: INFLIXIMAB
     Indication: Crohn^s disease
     Route: 042
  2. RAMIPRIL [Concomitant]
     Active Substance: RAMIPRIL
     Indication: Hypertension
     Dosage: UNKNOWN
     Route: 065
  3. AZATHIOPRINE SODIUM [Concomitant]
     Active Substance: AZATHIOPRINE SODIUM
     Indication: Product used for unknown indication
     Route: 065

REACTIONS (34)
  - Death [Fatal]
  - Blood pressure fluctuation [Fatal]
  - Condition aggravated [Fatal]
  - Oropharyngeal pain [Fatal]
  - Pyrexia [Fatal]
  - Anal abscess [Fatal]
  - Arthralgia [Fatal]
  - Cough [Fatal]
  - Haemorrhage [Fatal]
  - Hypertension [Fatal]
  - Weight decreased [Fatal]
  - Abdominal pain upper [Fatal]
  - Delusional perception [Fatal]
  - Depression [Fatal]
  - Diarrhoea [Fatal]
  - Hallucination [Fatal]
  - Heart rate decreased [Fatal]
  - Herpes zoster [Fatal]
  - Illness [Fatal]
  - Malaise [Fatal]
  - Mental disorder [Fatal]
  - Paranoia [Fatal]
  - Psychiatric symptom [Fatal]
  - Speech disorder [Fatal]
  - Stress [Fatal]
  - Ulcer [Fatal]
  - Wound [Fatal]
  - Abscess [Fatal]
  - Anal fissure [Fatal]
  - Alcohol abuse [Fatal]
  - Therapeutic response shortened [Fatal]
  - Off label use [Fatal]
  - Intentional product use issue [Fatal]
  - Inappropriate schedule of product administration [Fatal]
